FAERS Safety Report 8390065-7 (Version None)
Quarter: 2012Q2

REPORT INFORMATION
  Report Type: 
  Country: None (occurrence: None)
  Receive Date: 20120529
  Receipt Date: 20120515
  Transmission Date: 20120825
  Serious: Yes (Hospitalization, Other)
  Sender: FDA-Public Use
  Company Number: JP-JNJFOC-20120512221

PATIENT
  Sex: Female
  Weight: 51 kg

DRUGS (10)
  1. VENOGLOBULIN [Suspect]
     Indication: PRODUCT USED FOR UNKNOWN INDICATION
     Route: 065
     Dates: start: 20110831, end: 20110903
  2. REMICADE [Suspect]
     Dosage: 3RD DOSE
     Route: 042
     Dates: start: 20110809
  3. REMICADE [Suspect]
     Dosage: 1ST DOSE
     Route: 042
     Dates: start: 20110630
  4. PREDNISONE TAB [Suspect]
     Indication: RHEUMATOID ARTHRITIS
     Route: 048
     Dates: end: 20110823
  5. REMICADE [Suspect]
     Indication: RHEUMATOID ARTHRITIS
     Dosage: 2ND DOSE
     Route: 042
  6. METHOTREXATE [Suspect]
     Indication: RHEUMATOID ARTHRITIS
     Route: 048
     Dates: end: 20110823
  7. MEROPENEM [Suspect]
     Indication: PRODUCT USED FOR UNKNOWN INDICATION
     Route: 042
     Dates: start: 20110831, end: 20110907
  8. FOLIAMIN [Concomitant]
     Indication: PROPHYLAXIS
     Route: 048
     Dates: end: 20110823
  9. LORFENAMIN [Concomitant]
     Indication: RHEUMATOID ARTHRITIS
     Route: 048
  10. REBAMIPIDE [Concomitant]
     Indication: PROPHYLAXIS
     Route: 048

REACTIONS (2)
  - RASH [None]
  - PNEUMOCYSTIS JIROVECI PNEUMONIA [None]
